FAERS Safety Report 7936647-5 (Version None)
Quarter: 2011Q4

REPORT INFORMATION
  Report Type: 
  Country: None (occurrence: None)
  Receive Date: 20111123
  Receipt Date: 20111117
  Transmission Date: 20120403
  Serious: Yes (Other)
  Sender: FDA-Public Use
  Company Number: IN-B.I. PHARMACEUTICALS,INC./RIDGEFIELD-2011-EU-00514GD

PATIENT

DRUGS (8)
  1. ATRACURIUM [Concomitant]
     Indication: ENDOTRACHEAL INTUBATION
     Dosage: 0.5 MG/KG
  2. PHENARGAN [Concomitant]
     Indication: ANAESTHETIC PREMEDICATION
     Dosage: 1 MG/KG
     Route: 048
  3. SEVOFLURANE [Concomitant]
     Indication: INDUCTION OF ANAESTHESIA
     Dosage: INCREMENTAL CONCENTRATION STARTING AT 1% GRADUALLY INCREASING  TO 5-6%
  4. ISOFLURANE [Concomitant]
     Dosage: ADJUSTED TO 1-1.5 MAC
  5. FENTANYL [Concomitant]
     Dosage: 2 MCG/KG
     Route: 042
  6. OXYGEN/NITROUS OXIDE [Concomitant]
     Indication: INDUCTION OF ANAESTHESIA
     Dosage: OXYGEN/NITROUS OXIDE 50%/50%
     Route: 055
  7. CLONIDINE [Suspect]
     Indication: NERVE BLOCK
     Dosage: 1 ML OF 1 MCG/KG
  8. BUPIVACAINE HCL [Suspect]
     Indication: NERVE BLOCK
     Dosage: 1 ML OF 25%

REACTIONS (1)
  - LARYNGOSPASM [None]
